FAERS Safety Report 18507065 (Version 1)
Quarter: 2020Q4

REPORT INFORMATION
  Report Type: Spontaneous
  Country: US (occurrence: US)
  Receive Date: 20201115
  Receipt Date: 20201115
  Transmission Date: 20210114
  Serious: Yes (Disabling, Other)
  Sender: FDA-Public Use
  Company Number: None

PATIENT
  Age: 51 Year
  Sex: Female
  Weight: 83.25 kg

DRUGS (3)
  1. COSENTYX [Suspect]
     Active Substance: SECUKINUMAB
     Indication: ANKYLOSING SPONDYLITIS
     Dosage: ?          QUANTITY:1 INJECTION(S);OTHER FREQUENCY:MONTHLY;OTHER ROUTE:SUBCUTANEOUS?
  2. IBUPROFEN. [Concomitant]
     Active Substance: IBUPROFEN
  3. DULOXITINE [Concomitant]
     Active Substance: DULOXETINE

REACTIONS (4)
  - Cardiovascular disorder [None]
  - Fat tissue increased [None]
  - Dyspnoea [None]
  - Waist circumference increased [None]

NARRATIVE: CASE EVENT DATE: 20200301
